FAERS Safety Report 19370987 (Version 2)
Quarter: 2021Q2

REPORT INFORMATION
  Report Type: Spontaneous
  Country: ES (occurrence: ES)
  Receive Date: 20210603
  Receipt Date: 20210610
  Transmission Date: 20210717
  Serious: Yes (Hospitalization)
  Sender: FDA-Public Use
  Company Number: ES-AMERICAN REGENT INC-2021001413

PATIENT
  Age: 75 Year
  Sex: Female

DRUGS (6)
  1. DIGOXIN. [Concomitant]
     Active Substance: DIGOXIN
     Indication: ATRIAL FIBRILLATION
     Dosage: UNK
     Route: 048
     Dates: start: 201701
  2. VENOFER [Suspect]
     Active Substance: IRON SUCROSE
     Indication: HEREDITARY HAEMORRHAGIC TELANGIECTASIA
     Dosage: 600 MG, 1 IN 1 TOTAL
     Route: 042
     Dates: start: 20200714, end: 20200729
  3. RALOXIFENO [Concomitant]
     Indication: PRODUCT USED FOR UNKNOWN INDICATION
     Dosage: UNK
     Route: 048
     Dates: start: 201712, end: 20200814
  4. BEVACIZUMAB. [Suspect]
     Active Substance: BEVACIZUMAB
     Indication: HEREDITARY HAEMORRHAGIC TELANGIECTASIA
     Dosage: 315 MILLIGRAM, 1 IN 1 M
     Route: 042
     Dates: start: 20191119, end: 20200729
  5. OMEPRAZOLE. [Concomitant]
     Active Substance: OMEPRAZOLE
     Indication: PRODUCT USED FOR UNKNOWN INDICATION
     Dosage: UNK
     Route: 048
     Dates: start: 201007
  6. BISOPROLOL [Concomitant]
     Active Substance: BISOPROLOL
     Indication: ATRIAL FIBRILLATION
     Dosage: UNK
     Route: 048
     Dates: start: 201704

REACTIONS (3)
  - Tremor [Not Recovered/Not Resolved]
  - Off label use [Unknown]
  - Asthenia [Recovering/Resolving]

NARRATIVE: CASE EVENT DATE: 20200714
